FAERS Safety Report 24237244 (Version 1)
Quarter: 2024Q3

REPORT INFORMATION
  Report Type: Spontaneous
  Country: JP (occurrence: JP)
  Receive Date: 20240822
  Receipt Date: 20240822
  Transmission Date: 20241016
  Serious: Yes (Hospitalization)
  Sender: MYLAN
  Company Number: JP-MYLANLABS-2024M1076043

PATIENT
  Age: 8 Decade
  Sex: Female

DRUGS (3)
  1. CARVEDILOL [Suspect]
     Active Substance: CARVEDILOL
     Indication: Hypertension
     Dosage: UNK
     Route: 065
  2. AMLODIPINE [Suspect]
     Active Substance: AMLODIPINE BESYLATE
     Indication: Hypertension
     Dosage: UNK
     Route: 065
  3. PITAVASTATIN [Concomitant]
     Active Substance: PITAVASTATIN
     Indication: Product used for unknown indication
     Route: 065

REACTIONS (4)
  - Intentional overdose [Unknown]
  - Toxicity to various agents [Unknown]
  - Rhabdomyolysis [Unknown]
  - Acute kidney injury [Unknown]
